FAERS Safety Report 19471444 (Version 1)
Quarter: 2021Q2

REPORT INFORMATION
  Report Type: Spontaneous
  Country: ES (occurrence: ES)
  Receive Date: 20210628
  Receipt Date: 20210628
  Transmission Date: 20210717
  Serious: Yes (Hospitalization, Other)
  Sender: FDA-Public Use
  Company Number: PT-SUNOVION-2021SUN002424

PATIENT

DRUGS (3)
  1. TORASEMIDA ALTER [Suspect]
     Active Substance: TORSEMIDE
     Indication: HYPERTENSION
     Dosage: UNK, IRREGULAR USE
     Route: 048
     Dates: start: 20180323, end: 20190530
  2. ZEBINIX [Suspect]
     Active Substance: ESLICARBAZEPINE ACETATE
     Indication: TRIGEMINAL NEURALGIA
     Dosage: 1 DOSAGE FORM, DAILY
     Route: 048
     Dates: start: 20190408, end: 20190530
  3. CEFDITOREN [Suspect]
     Active Substance: CEFDITOREN
     Indication: RESPIRATORY TRACT INFECTION
     Dosage: 400 MILLIGRAM, 1X / DAY (1?0?0)
     Route: 048
     Dates: start: 20190513, end: 20190522

REACTIONS (3)
  - Renal tubular necrosis [Recovered/Resolved]
  - Tubulointerstitial nephritis [Recovered/Resolved]
  - Off label use [Unknown]

NARRATIVE: CASE EVENT DATE: 20190408
